FAERS Safety Report 17022793 (Version 5)
Quarter: 2020Q3

REPORT INFORMATION
  Report Type: Spontaneous
  Country: US (occurrence: US)
  Receive Date: 20191112
  Receipt Date: 20200820
  Transmission Date: 20201102
  Serious: Yes (Congenital Anomaly, Other)
  Sender: FDA-Public Use
  Company Number: NVSC2019US027079

PATIENT
  Sex: Female

DRUGS (3)
  1. ZOFRAN ODT [Suspect]
     Active Substance: ONDANSETRON HYDROCHLORIDE
     Indication: FOETAL EXPOSURE DURING PREGNANCY
     Dosage: MOTHER DOSE: 04 MG, Q6H
     Route: 064
  2. ZOFRAN [Suspect]
     Active Substance: ONDANSETRON HYDROCHLORIDE
     Indication: FOETAL EXPOSURE DURING PREGNANCY
     Dosage: MOTHER DOSE: 04 MG, Q6H
     Route: 064
  3. ZOFRAN [Suspect]
     Active Substance: ONDANSETRON HYDROCHLORIDE
     Dosage: MOTHER DOSE: 04 MG, Q6H
     Route: 064

REACTIONS (26)
  - Fall [Unknown]
  - Upper respiratory tract infection [Unknown]
  - Eustachian tube dysfunction [Unknown]
  - Middle ear effusion [Unknown]
  - Snoring [Unknown]
  - Anhedonia [Unknown]
  - Otorrhoea [Unknown]
  - Cleft lip and palate [Unknown]
  - Emotional distress [Unknown]
  - Ear infection [Unknown]
  - Cerumen impaction [Unknown]
  - Speech disorder [Unknown]
  - Congenital anomaly [Unknown]
  - Deformity [Unknown]
  - Granuloma [Unknown]
  - Nasal congestion [Unknown]
  - Rhinorrhoea [Unknown]
  - Hypoacusis [Unknown]
  - Pain [Unknown]
  - Otitis media chronic [Unknown]
  - Conductive deafness [Unknown]
  - Foetal exposure during pregnancy [Unknown]
  - Dysphagia [Unknown]
  - Feeding disorder [Unknown]
  - Nasopharyngitis [Unknown]
  - Cough [Unknown]
